FAERS Safety Report 15802147 (Version 1)
Quarter: 2018Q4

REPORT INFORMATION
  Report Type: Spontaneous
  Country: US (occurrence: US)
  Receive Date: 20181213
  Receipt Date: 20181213
  Transmission Date: 20190205
  Serious: No
  Sender: FDA-Public Use
  Company Number: None

PATIENT
  Age: 56 Year
  Sex: Female

DRUGS (1)
  1. COSENTYX [Suspect]
     Active Substance: SECUKINUMAB
     Indication: RHEUMATOID ARTHRITIS
     Dates: start: 201811

REACTIONS (5)
  - Stress at work [None]
  - Underdose [None]
  - Arthralgia [None]
  - Off label use [None]
  - Joint swelling [None]

NARRATIVE: CASE EVENT DATE: 20181211
